FAERS Safety Report 16881244 (Version 1)
Quarter: 2019Q4

REPORT INFORMATION
  Report Type: Spontaneous
  Country: US (occurrence: US)
  Receive Date: 20191003
  Receipt Date: 20191003
  Transmission Date: 20200122
  Serious: No
  Sender: FDA-Public Use
  Company Number: US-GLAXOSMITHKLINE-US2019176127

PATIENT
  Sex: Female

DRUGS (1)
  1. ABREVA [Suspect]
     Active Substance: DOCOSANOL
     Indication: ORAL HERPES
     Dosage: UNK, QD (4 TO 5 TIMES A DAY)
     Route: 061
     Dates: start: 20190905, end: 20190920

REACTIONS (2)
  - Inappropriate schedule of product administration [Unknown]
  - Incorrect product administration duration [Unknown]
